FAERS Safety Report 21469617 (Version 1)
Quarter: 2022Q4

REPORT INFORMATION
  Report Type: Spontaneous
  Country: US (occurrence: US)
  Receive Date: 20221018
  Receipt Date: 20221018
  Transmission Date: 20230112
  Serious: No
  Sender: FDA-Public Use
  Company Number: US-ADAMAS PHARMA, LLC-2022ADA00042

PATIENT
  Sex: Female

DRUGS (4)
  1. GOCOVRI [Suspect]
     Active Substance: AMANTADINE
     Indication: Dyskinesia
     Dosage: 68.5 MG, 1X/DAY EVERY NIGHT AT BEDTIME
     Route: 048
     Dates: start: 20211209, end: 20211215
  2. GOCOVRI [Suspect]
     Active Substance: AMANTADINE
     Dosage: 137 MG, 1X/DAY EVERY NIGHT AT BEDTIME
     Route: 048
     Dates: start: 20211216, end: 20211222
  3. GOCOVRI [Suspect]
     Active Substance: AMANTADINE
     Dosage: 205.5 MG, 1X/DAY EVERY NIGHT AT BEDTIME AS DIRECTED
     Route: 048
     Dates: start: 20211223, end: 20220107
  4. LEVODOPA [Concomitant]
     Active Substance: LEVODOPA

REACTIONS (2)
  - Fall [Recovered/Resolved]
  - Dizziness [Not Recovered/Not Resolved]
